FAERS Safety Report 6707543-6 (Version None)
Quarter: 2010Q2

REPORT INFORMATION
  Report Type: 
  Country: None (occurrence: None)
  Receive Date: 20100503
  Receipt Date: 20090930
  Transmission Date: 20101027
  Serious: Yes (Other)
  Sender: FDA-Public Use
  Company Number: US-BAYER-200934885NA

PATIENT
  Age: 40 Year
  Sex: Female

DRUGS (2)
  1. CIPRO [Suspect]
     Indication: DIVERTICULITIS
     Route: 048
     Dates: end: 20090701
  2. CIPRO [Suspect]
     Indication: DIVERTICULITIS
     Route: 042
     Dates: end: 20090701

REACTIONS (4)
  - HYPOAESTHESIA [None]
  - MUSCULAR WEAKNESS [None]
  - NEUROPATHY PERIPHERAL [None]
  - PARAESTHESIA [None]
